FAERS Safety Report 9259322 (Version 1)
Quarter: 2013Q2

REPORT INFORMATION
  Report Type: Report from Study
  Country: AR (occurrence: AR)
  Receive Date: 20130427
  Receipt Date: 20130427
  Transmission Date: 20140414
  Serious: Yes (Other)
  Sender: FDA-Public Use
  Company Number: AR-ROCHE-1218250

PATIENT
  Age: 91 Year
  Sex: Female

DRUGS (1)
  1. LUCENTIS [Suspect]
     Indication: HAEMORRHAGE
     Route: 050
     Dates: start: 2012

REACTIONS (2)
  - Blindness [Not Recovered/Not Resolved]
  - Cataract [Not Recovered/Not Resolved]
